FAERS Safety Report 24018109 (Version 1)
Quarter: 2024Q2

REPORT INFORMATION
  Report Type: Spontaneous
  Country: US (occurrence: US)
  Receive Date: 20240627
  Receipt Date: 20240627
  Transmission Date: 20240716
  Serious: Yes (Life-Threatening, Hospitalization, Other)
  Sender: FDA-Public Use
  Company Number: US-ADAREPHARM-2024-US-000053

PATIENT
  Age: 49 Year
  Sex: Male

DRUGS (3)
  1. PROPRANOLOL [Suspect]
     Active Substance: PROPRANOLOL HYDROCHLORIDE
     Indication: Hyperthyroidism
  2. METHIMAZOLE [Suspect]
     Active Substance: METHIMAZOLE
  3. DILTIAZEM [Interacting]
     Active Substance: DILTIAZEM

REACTIONS (5)
  - Hypotension [Unknown]
  - Bradycardia [Recovered/Resolved]
  - Cardiac arrest [Recovered/Resolved]
  - Potentiating drug interaction [Unknown]
  - Drug ineffective for unapproved indication [Unknown]
